FAERS Safety Report 4422606-6 (Version None)
Quarter: 2004Q3

REPORT INFORMATION
  Report Type: 
  Country: None (occurrence: None)
  Receive Date: 20040713
  Receipt Date: 20030609
  Transmission Date: 20050211
  Serious: No
  Sender: FDA-Public Use
  Company Number: PHEH2003US04787

PATIENT
  Age: 18 Month
  Sex: Male

DRUGS (3)
  1. ELIDEL [Suspect]
     Indication: ECZEMA
     Dosage: QD, TOPICAL
     Route: 061
     Dates: start: 20030401, end: 20030609
  2. FLOVENT [Concomitant]
  3. ALBUTEROL [Concomitant]

REACTIONS (1)
  - RASH MACULO-PAPULAR [None]
